FAERS Safety Report 17227800 (Version 1)
Quarter: 2020Q1

REPORT INFORMATION
  Report Type: Report from Study
  Country: None (occurrence: US)
  Receive Date: 20200103
  Receipt Date: 20200103
  Transmission Date: 20200409
  Serious: Yes (Other)
  Sender: FDA-Public Use
  Company Number: US-ABBVIE-19K-163-3166264-00

PATIENT
  Age: 69 Year
  Sex: Male

DRUGS (2)
  1. IMBRUVICA [Suspect]
     Active Substance: IBRUTINIB
     Indication: WHITE BLOOD CELL COUNT ABNORMAL
     Dosage: 420 MG, QD, IN MORNING WITH OR WITHOUT FOOD.
     Route: 048
     Dates: start: 20191029
  2. IMBRUVICA [Suspect]
     Active Substance: IBRUTINIB
     Indication: CHRONIC LYMPHOCYTIC LEUKAEMIA
     Dosage: 420 MG, QD, IN MORNING WITH OR WITHOUT FOOD.
     Route: 048
     Dates: start: 20191030

REACTIONS (14)
  - Ocular hyperaemia [Unknown]
  - Diarrhoea [Not Recovered/Not Resolved]
  - Decreased appetite [Unknown]
  - Red blood cell count decreased [Unknown]
  - Eye haemorrhage [Recovered/Resolved]
  - Product use in unapproved indication [Unknown]
  - Product dose omission [Unknown]
  - Diarrhoea [Recovered/Resolved]
  - Rash [Unknown]
  - Epistaxis [Unknown]
  - Off label use [Unknown]
  - Poor quality sleep [Unknown]
  - Joint swelling [Unknown]
  - Vomiting [Not Recovered/Not Resolved]

NARRATIVE: CASE EVENT DATE: 2019
